FAERS Safety Report 14265683 (Version 2)
Quarter: 2018Q1

REPORT INFORMATION
  Report Type: Spontaneous
  Country: US (occurrence: US)
  Receive Date: 20171208
  Receipt Date: 20180125
  Transmission Date: 20180508
  Serious: Yes (Hospitalization)
  Sender: FDA-Public Use
  Company Number: US-BIOMARINAP-US-2017-116308

PATIENT
  Age: 18 Year
  Sex: Male
  Weight: 35.8 kg

DRUGS (1)
  1. VIMIZIM [Suspect]
     Active Substance: ELOSULFASE ALFA
     Indication: MUCOPOLYSACCHARIDOSIS IV
     Dosage: 70 MG, QW
     Route: 042
     Dates: start: 20170214

REACTIONS (5)
  - Cellulitis [Unknown]
  - Respiratory distress [Unknown]
  - Wound abscess [Recovered/Resolved]
  - Purulent discharge [Recovered/Resolved]
  - Pneumonia [Unknown]

NARRATIVE: CASE EVENT DATE: 20171130
